FAERS Safety Report 7087960-8 (Version None)
Quarter: 2010Q4

REPORT INFORMATION
  Report Type: 
  Country: None (occurrence: None)
  Receive Date: 20101001
  Receipt Date: 20100601
  Transmission Date: 20110411
  Serious: No
  Sender: FDA-Public Use
  Company Number: 1000014220

PATIENT
  Age: 83 Year
  Sex: Female

DRUGS (7)
  1. BYSTOLIC [Suspect]
     Indication: HYPERTENSION
     Dosage: 10 MG (10 MG, 1 IN 1 D), ORAL
     Route: 048
     Dates: start: 20100501, end: 20100501
  2. GLUCOVANCE [Concomitant]
  3. LISINOPRIL [Concomitant]
  4. BONIVA [Concomitant]
  5. AMBIEN [Concomitant]
  6. VITAMIN D [Concomitant]
  7. COENZYME Q10 [Concomitant]

REACTIONS (4)
  - ASTHENIA [None]
  - BLOOD PRESSURE INCREASED [None]
  - DIZZINESS [None]
  - NAUSEA [None]
